FAERS Safety Report 16254475 (Version 2)
Quarter: 2019Q2

REPORT INFORMATION
  Report Type: Spontaneous
  Country: US (occurrence: US)
  Receive Date: 20190430
  Receipt Date: 20190603
  Transmission Date: 20190711
  Serious: Yes (Other)
  Sender: FDA-Public Use
  Company Number: US-ROCHE-2309324

PATIENT
  Age: 41 Year
  Sex: Female
  Weight: 74.91 kg

DRUGS (5)
  1. OCREVUS [Suspect]
     Active Substance: OCRELIZUMAB
     Dosage: SECOND INFUSION
     Route: 042
     Dates: start: 20190405
  2. OCREVUS [Suspect]
     Active Substance: OCRELIZUMAB
     Indication: MULTIPLE SCLEROSIS
     Dosage: ^HALF DOSE^ GIVEN 2 WEEKS APART
     Route: 042
     Dates: start: 20190322
  3. SUMATRIPTAN. [Concomitant]
     Active Substance: SUMATRIPTAN
     Indication: HEADACHE
     Dosage: ^LOWEST DOSE^
     Route: 048
     Dates: start: 20180101
  4. ACYCLOVIR [ACICLOVIR] [Concomitant]
     Active Substance: ACYCLOVIR
     Indication: ORAL HERPES
     Route: 065
     Dates: start: 20010101
  5. NORETHINDRONE [NORETHISTERONE] [Concomitant]
     Indication: CONTRACEPTION

REACTIONS (3)
  - Thirst [Recovered/Resolved]
  - Multiple sclerosis [Unknown]
  - Nasopharyngitis [Not Recovered/Not Resolved]

NARRATIVE: CASE EVENT DATE: 20190322
